FAERS Safety Report 5898651-0 (Version None)
Quarter: 2008Q3

REPORT INFORMATION
  Report Type: 
  Country: None (occurrence: None)
  Receive Date: 20080925
  Receipt Date: 20080317
  Transmission Date: 20090109
  Serious: No
  Sender: FDA-Public Use
  Company Number: A0715784A

PATIENT
  Age: 27 Year
  Sex: Female

DRUGS (2)
  1. WELLBUTRIN XL [Suspect]
     Indication: MAJOR DEPRESSION
     Dosage: 300MG PER DAY
     Route: 048
     Dates: start: 20071001, end: 20080101
  2. EFFEXOR [Concomitant]

REACTIONS (2)
  - ANGER [None]
  - DEPRESSION [None]
